FAERS Safety Report 9295011 (Version 2)
Quarter: 2013Q2

REPORT INFORMATION
  Report Type: Spontaneous
  Country: PR (occurrence: PR)
  Receive Date: 20130517
  Receipt Date: 20130528
  Transmission Date: 20140414
  Serious: Yes (Other)
  Sender: FDA-Public Use
  Company Number: PR-BAYER-2013-060177

PATIENT
  Age: 68 Year
  Sex: Female

DRUGS (2)
  1. NEXAVAR [Suspect]
     Indication: HEPATIC CANCER
     Dosage: TOTAL DAILY DOSE: 800MG
     Route: 048
     Dates: start: 20130511
  2. NEXAVAR [Suspect]
     Indication: BILE DUCT CANCER

REACTIONS (4)
  - Diarrhoea [None]
  - Haematochezia [None]
  - Palpitations [None]
  - Off label use [None]
